FAERS Safety Report 25642452 (Version 1)
Quarter: 2025Q3

REPORT INFORMATION
  Report Type: Report from Study
  Country: US (occurrence: US)
  Receive Date: 20250805
  Receipt Date: 20250805
  Transmission Date: 20251021
  Serious: Yes (Other)
  Sender: NOVO NORDISK
  Company Number: US-NOVOPROD-1480347

PATIENT
  Sex: Female

DRUGS (2)
  1. NOVOLOG [Suspect]
     Active Substance: INSULIN ASPART
     Indication: Diabetes mellitus
  2. LANTUS [Suspect]
     Active Substance: INSULIN GLARGINE
     Indication: Product used for unknown indication

REACTIONS (7)
  - Blood glucose fluctuation [Unknown]
  - Diabetic retinopathy [Unknown]
  - Blindness [Unknown]
  - Eye operation [Unknown]
  - Blood glucose increased [Unknown]
  - Fall [Unknown]
  - Diabetic blindness [Unknown]
